FAERS Safety Report 7507050-7 (Version None)
Quarter: 2011Q2

REPORT INFORMATION
  Report Type: 
  Country: None (occurrence: None)
  Receive Date: 20110526
  Receipt Date: 20110516
  Transmission Date: 20111010
  Serious: Yes (Life-Threatening, Hospitalization)
  Sender: FDA-Public Use
  Company Number: DE-UCBSA-033008

PATIENT
  Sex: Female
  Weight: 51 kg

DRUGS (6)
  1. METHOTREXATE [Concomitant]
     Indication: RHEUMATOID ARTHRITIS
     Dosage: 20 MG QS(SUFFICIENT QUANTITY)
     Dates: start: 20101009, end: 20110323
  2. FOLIC ACID [Concomitant]
     Indication: RHEUMATOID ARTHRITIS
     Dosage: 5 MG QS (SUFFICIENT QUANTITY)
     Dates: start: 20040422, end: 20110323
  3. CIMZIA [Suspect]
     Indication: RHEUMATOID ARTHRITIS
     Dosage: NBR OF DOSES RECEIVED: 15
     Route: 058
     Dates: start: 20100827, end: 20110321
  4. DEKRISTOL [Concomitant]
     Indication: OSTEOPOROSIS
     Dosage: QS
     Dates: start: 20100730
  5. PREDNISOLONE [Concomitant]
     Indication: RHEUMATOID ARTHRITIS
     Dates: start: 20110316
  6. ALENDRONIC ACID [Concomitant]
     Indication: OSTEOPOROSIS
     Dosage: 70 MG QS
     Dates: start: 20100730

REACTIONS (2)
  - PULMONARY TUBERCULOSIS [None]
  - RHEUMATOID ARTHRITIS [None]
